FAERS Safety Report 7786584-4 (Version None)
Quarter: 2011Q3

REPORT INFORMATION
  Report Type: 
  Country: None (occurrence: None)
  Receive Date: 20110929
  Receipt Date: 20110919
  Transmission Date: 20111222
  Serious: Yes (Hospitalization)
  Sender: FDA-Public Use
  Company Number: US-ELI_LILLY_AND_COMPANY-US201109006184

PATIENT
  Sex: Female

DRUGS (14)
  1. CYMBALTA [Suspect]
     Dosage: 60 MG, QD
     Dates: start: 20110801
  2. ZOLOFT [Concomitant]
     Dosage: 25 MG, UNK
  3. ZYPREXA [Suspect]
     Dosage: 5 MG, QD
     Dates: start: 20110701
  4. ZYPREXA [Suspect]
     Dosage: 2.5 MG, QD
     Dates: end: 20110801
  5. ZYPREXA [Suspect]
     Dosage: OVERDOSE FULL BOTTLE OF 2.5MG
     Dates: start: 20110806
  6. ZOLOFT [Concomitant]
     Dosage: 50 MG, UNK
  7. ZOLOFT [Concomitant]
     Dosage: 75 MG, UNK
  8. SEROQUEL [Concomitant]
     Dosage: 6 DF, UNK
  9. AMBIEN [Concomitant]
  10. LORAZEPAM [Concomitant]
     Indication: ANXIETY
     Dosage: 2 MG, QD
  11. ZYPREXA [Suspect]
     Indication: ANXIETY
     Dosage: 2.5 MG, QD
     Dates: start: 20110314, end: 20110601
  12. CYMBALTA [Suspect]
     Dosage: 30 MG, QD
     Dates: start: 20110809, end: 20110801
  13. ZOLOFT [Concomitant]
     Dosage: 25 MG, UNK
  14. CYMBALTA [Suspect]
     Dosage: 30 MG, QD

REACTIONS (13)
  - DYSPNOEA [None]
  - DEPRESSION [None]
  - INTENTIONAL OVERDOSE [None]
  - CONSTIPATION [None]
  - FATIGUE [None]
  - OFF LABEL USE [None]
  - ANXIETY [None]
  - EATING DISORDER [None]
  - GASTRIC DISORDER [None]
  - SUICIDE ATTEMPT [None]
  - NAUSEA [None]
  - TREMOR [None]
  - DRUG INEFFECTIVE [None]
